APPROVED DRUG PRODUCT: OXLUMO
Active Ingredient: LUMASIRAN SODIUM
Strength: EQ 94.5MG BASE/0.5ML (EQ 94.5MG BASE/0.5ML)
Dosage Form/Route: SOLUTION;SUBCUTANEOUS
Application: N214103 | Product #001
Applicant: ALNYLAM PHARMACEUTICALS INC
Approved: Nov 23, 2020 | RLD: Yes | RS: Yes | Type: RX

PATENTS:
Patent 11401517 | Expires: Aug 14, 2035
Patent 11060093 | Expires: Dec 26, 2034
Patent 10478500 | Expires: Oct 9, 2035
Patent 8106022 | Expires: Dec 12, 2029
Patent 8828956 | Expires: Dec 4, 2028
Patent 10131907 | Expires: Aug 24, 2028
Patent 10612024 | Expires: Aug 14, 2035
Patent 10612027 | Expires: Aug 14, 2035
Patent 10465195 | Expires: Dec 26, 2034
Patent 10435692 | Expires: Dec 26, 2034
Patent 10487330 | Expires: Dec 26, 2034
Patent 11261447 | Expires: Nov 20, 2038
Patent 9828606 | Expires: Dec 26, 2034
Patent 11446380 | Expires: Oct 9, 2035

EXCLUSIVITY:
Code: ODE-339 | Date: Nov 23, 2027
Code: ODE-415 | Date: Oct 6, 2029